FAERS Safety Report 9524514 (Version 1)
Quarter: 2013Q3

REPORT INFORMATION
  Report Type: Spontaneous
  Country: US (occurrence: US)
  Receive Date: 20130916
  Receipt Date: 20130916
  Transmission Date: 20140515
  Serious: No
  Sender: FDA-Public Use
  Company Number: US-PFIZER INC-2013265643

PATIENT
  Age: 74 Year
  Sex: Female
  Weight: 58.96 kg

DRUGS (6)
  1. CHANTIX [Suspect]
     Indication: SMOKING CESSATION THERAPY
     Dosage: 0.5MG DAILY
     Dates: start: 20130903, end: 201309
  2. CHANTIX [Suspect]
     Dosage: 0.5 MG, 2X/DAY
     Dates: start: 201309, end: 201309
  3. CHANTIX [Suspect]
     Dosage: 1 MG, 2X/DAY
     Dates: start: 201309
  4. PREMPRO [Concomitant]
     Indication: MENOPAUSE
     Dosage: UNK
  5. SUDAFED [Concomitant]
     Indication: SINUS DISORDER
     Dosage: UNK
  6. SUDAFED [Concomitant]
     Indication: HYPERSENSITIVITY

REACTIONS (1)
  - Nausea [Recovering/Resolving]
